FAERS Safety Report 4342465-X (Version None)
Quarter: 2004Q2

REPORT INFORMATION
  Report Type: 
  Country: None (occurrence: None)
  Receive Date: 20040413
  Receipt Date: 20040401
  Transmission Date: 20050107
  Serious: Yes (Hospitalization)
  Sender: FDA-Public Use
  Company Number: 2003AP04400

PATIENT
  Age: 65 Year
  Sex: Male

DRUGS (6)
  1. IRESSA [Suspect]
     Indication: NON-SMALL CELL LUNG CANCER
     Dosage: 250 MG DAILY PO
     Route: 048
     Dates: start: 20031203, end: 20031208
  2. IRESSA [Suspect]
     Indication: NON-SMALL CELL LUNG CANCER
     Dosage: 250 MG DAILY PO
     Route: 048
     Dates: start: 20040106, end: 20040118
  3. IRESSA [Suspect]
     Indication: NON-SMALL CELL LUNG CANCER
     Dosage: 250 MG DAILY PO
     Route: 048
     Dates: start: 20040128
  4. BEZATOL - SLOW RELEASE [Concomitant]
  5. ZANTAC [Concomitant]
  6. RADIATION THERAPY [Concomitant]

REACTIONS (2)
  - BILE DUCT OBSTRUCTION [None]
  - JAUNDICE CHOLESTATIC [None]
